FAERS Safety Report 9221607 (Version 2)
Quarter: 2013Q2

REPORT INFORMATION
  Report Type: Spontaneous
  Country: SE (occurrence: SE)
  Receive Date: 20130410
  Receipt Date: 20130412
  Transmission Date: 20140414
  Serious: Yes (Other)
  Sender: FDA-Public Use
  Company Number: SE-009507513-1304SWE001768

PATIENT
  Age: 36 Year
  Sex: Female

DRUGS (1)
  1. NEXPLANON [Suspect]
     Indication: CONTRACEPTION
     Dosage: UNK MG, UNK
     Route: 059
     Dates: start: 20120425, end: 20130219

REACTIONS (3)
  - Skin reaction [Recovered/Resolved]
  - Weight decreased [Unknown]
  - Device dislocation [Unknown]
